FAERS Safety Report 10939818 (Version 1)
Quarter: 2015Q1

REPORT INFORMATION
  Report Type: Spontaneous
  Country: US (occurrence: None)
  Receive Date: 20150212
  Receipt Date: 20150212
  Transmission Date: 20150721
  Serious: No
  Sender: FDA-Public Use
  Company Number: TPA2010A06148

PATIENT
  Age: 6 Decade
  Sex: Female

DRUGS (2)
  1. UNKNOWN HIGH BLOOD PRESSURE (ALL OTHER THERAPEUTIC PRODUCTS) [Concomitant]
  2. ULORIC [Suspect]
     Active Substance: FEBUXOSTAT
     Indication: GOUT
     Dosage: 1 IN 1 D
     Route: 048
     Dates: start: 2010, end: 2010

REACTIONS (1)
  - Flushing [None]

NARRATIVE: CASE EVENT DATE: 2010
